FAERS Safety Report 5892931-0 (Version None)
Quarter: 2008Q3

REPORT INFORMATION
  Report Type: 
  Country: None (occurrence: None)
  Receive Date: 20080922
  Receipt Date: 20080922
  Transmission Date: 20090109
  Serious: Yes (Hospitalization)
  Sender: FDA-Public Use
  Company Number: None

PATIENT
  Sex: Female
  Weight: 120.2032 kg

DRUGS (1)
  1. SIMVASTATIN [Suspect]
     Indication: BLOOD CHOLESTEROL INCREASED
     Dosage: 5MG DAILY OTHER
     Route: 050
     Dates: start: 20010902, end: 20080615

REACTIONS (5)
  - ARTHRITIS [None]
  - PLANTAR FASCIITIS [None]
  - SWELLING [None]
  - TENDON DISORDER [None]
  - TENDON PAIN [None]
